FAERS Safety Report 6318613-9 (Version None)
Quarter: 2009Q3

REPORT INFORMATION
  Report Type: 
  Country: None (occurrence: None)
  Receive Date: 20090819
  Receipt Date: 20090811
  Transmission Date: 20100115
  Serious: Yes (Hospitalization, Other)
  Sender: FDA-Public Use
  Company Number: 2009-0576

PATIENT
  Sex: Male

DRUGS (1)
  1. DYSPORT [Suspect]
     Dosage: INTRAMUSCULAR
     Route: 030

REACTIONS (3)
  - ASPIRATION [None]
  - DYSPHAGIA [None]
  - LOWER RESPIRATORY TRACT INFECTION [None]
